FAERS Safety Report 8359632-0 (Version None)
Quarter: 2012Q2

REPORT INFORMATION
  Report Type: 
  Country: None (occurrence: None)
  Receive Date: 20120514
  Receipt Date: 20120514
  Transmission Date: 20120825
  Serious: Yes (Other)
  Sender: FDA-Public Use
  Company Number: None

PATIENT
  Sex: Female
  Weight: 86 kg

DRUGS (1)
  1. H P ACTHAR [Suspect]
     Dosage: INJECTABLE QD
     Dates: start: 20120427, end: 20120502

REACTIONS (1)
  - OEDEMA PERIPHERAL [None]
